FAERS Safety Report 7104743-0 (Version None)
Quarter: 2010Q4

REPORT INFORMATION
  Report Type: 
  Country: None (occurrence: None)
  Receive Date: 20101116
  Receipt Date: 20101105
  Transmission Date: 20110411
  Serious: Yes (Other)
  Sender: FDA-Public Use
  Company Number: DE-JNJFOC-20101100645

PATIENT
  Sex: Male
  Weight: 94 kg

DRUGS (4)
  1. RISPERDAL CONSTA [Suspect]
     Indication: POST-TRAUMATIC STRESS DISORDER
     Route: 030
  2. RISPERDAL CONSTA [Suspect]
     Indication: OBSESSIVE-COMPULSIVE DISORDER
     Route: 030
  3. PROTON PUMP INHIBITORS [Concomitant]
     Indication: GASTROOESOPHAGEAL REFLUX DISEASE
     Route: 065
  4. OMEPRAZOLE [Concomitant]
     Indication: ILL-DEFINED DISORDER
     Route: 065

REACTIONS (5)
  - BRONCHITIS [None]
  - PNEUMONIA [None]
  - RESPIRATORY DISORDER [None]
  - RESPIRATORY TRACT INFECTION [None]
  - THROAT IRRITATION [None]
